FAERS Safety Report 5894157-3 (Version None)
Quarter: 2008Q3

REPORT INFORMATION
  Report Type: 
  Country: None (occurrence: None)
  Receive Date: 20080923
  Receipt Date: 20080206
  Transmission Date: 20090109
  Serious: No
  Sender: FDA-Public Use
  Company Number: US-ASTRAZENECA-2008UW02628

PATIENT
  Sex: Female
  Weight: 79.4 kg

DRUGS (4)
  1. SEROQUEL [Suspect]
     Indication: DEPRESSION
     Route: 048
     Dates: start: 20071201, end: 20080205
  2. SEROQUEL [Suspect]
     Route: 048
     Dates: start: 20080206
  3. ELECTRIC SHOCK THERAPY [Concomitant]
     Dates: start: 20080101
  4. SYNTHROID [Concomitant]

REACTIONS (3)
  - INSOMNIA [None]
  - MYALGIA [None]
  - NAUSEA [None]
